FAERS Safety Report 5194356-2 (Version None)
Quarter: 2006Q4

REPORT INFORMATION
  Report Type: 
  Country: None (occurrence: None)
  Receive Date: 20061228
  Receipt Date: 20061205
  Transmission Date: 20070319
  Serious: Yes (Death)
  Sender: FDA-Public Use
  Company Number: IT-PFIZER INC-2006150837

PATIENT
  Sex: Male
  Weight: 51 kg

DRUGS (4)
  1. SU-011,248 [Suspect]
     Indication: RENAL CELL CARCINOMA STAGE UNSPECIFIED
     Route: 048
     Dates: start: 20061124, end: 20061202
  2. AMOXICILLIN [Concomitant]
     Route: 048
     Dates: start: 20061202, end: 20061203
  3. EPOETIN BETA [Concomitant]
     Route: 058
     Dates: start: 20061124, end: 20061124
  4. EPOETIN BETA [Concomitant]
     Route: 058
     Dates: start: 20061201, end: 20061201

REACTIONS (2)
  - DISEASE PROGRESSION [None]
  - PYREXIA [None]
